FAERS Safety Report 4688883-1 (Version None)
Quarter: 2005Q2

REPORT INFORMATION
  Report Type: 
  Country: None (occurrence: None)
  Receive Date: 20050602
  Receipt Date: 20050519
  Transmission Date: 20051028
  Serious: Yes (Hospitalization)
  Sender: FDA-Public Use
  Company Number: SAGL-ZLB/05/46/FRA

PATIENT
  Age: 24 Year
  Sex: Female

DRUGS (1)
  1. SANDOGLOBULIN [Suspect]
     Dosage: 12 G, ONCE, I.V.
     Route: 042
     Dates: start: 20050502, end: 20050502

REACTIONS (3)
  - ANGIONEUROTIC OEDEMA [None]
  - DIARRHOEA [None]
  - HYPOXIA [None]
